FAERS Safety Report 8996189 (Version 2)
Quarter: 2013Q1

REPORT INFORMATION
  Report Type: Spontaneous
  Country: US (occurrence: US)
  Receive Date: 20130103
  Receipt Date: 20130115
  Transmission Date: 20140127
  Serious: Yes (Hospitalization)
  Sender: FDA-Public Use
  Company Number: US-INCYTE CORPORATION-2012IN002020

PATIENT
  Age: 70 None
  Sex: Male
  Weight: 81.18 kg

DRUGS (2)
  1. JAKAFI [Suspect]
     Indication: MYELOFIBROSIS
     Dosage: 15 MG, BID
     Route: 048
     Dates: start: 20111213, end: 201212
  2. JAKAFI [Suspect]
     Dosage: 15 MG, QD
     Route: 048
     Dates: start: 201212, end: 201212

REACTIONS (3)
  - Fall [Unknown]
  - Platelet count decreased [Recovering/Resolving]
  - Bone pain [Unknown]
